FAERS Safety Report 8664965 (Version 2)
Quarter: 2013Q4

REPORT INFORMATION
  Report Type: Spontaneous
  Country: US (occurrence: US)
  Receive Date: 20120714
  Receipt Date: 20131101
  Transmission Date: 20140711
  Serious: No
  Sender: FDA-Public Use
  Company Number: US-009507513-1207USA002492

PATIENT
  Sex: Female

DRUGS (5)
  1. PEGINTRON [Suspect]
     Indication: CHRONIC HEPATITIS C
     Dosage: 96 MICROGRAM, QW
     Route: 058
     Dates: start: 201204
  2. REBETOL [Suspect]
     Dosage: UNK, UNKNOWN
  3. UNISOM (DIPHENHYDRAMINE HYDROCHLORIDE) [Concomitant]
  4. ALLEGRA [Concomitant]
  5. VITAMINS (UNSPECIFIED) [Concomitant]

REACTIONS (4)
  - Dyspepsia [Not Recovered/Not Resolved]
  - Injection site rash [Not Recovered/Not Resolved]
  - Haemoglobin decreased [Not Recovered/Not Resolved]
  - Fatigue [Not Recovered/Not Resolved]
